FAERS Safety Report 4966980-0 (Version None)
Quarter: 2006Q2

REPORT INFORMATION
  Report Type: 
  Country: None (occurrence: None)
  Receive Date: 20060403
  Receipt Date: 20060321
  Transmission Date: 20061013
  Serious: Yes (Life-Threatening, Hospitalization, Other)
  Sender: FDA-Public Use
  Company Number: 2006039807

PATIENT
  Age: 61 Year
  Sex: Female
  Weight: 111.1313 kg

DRUGS (5)
  1. ZOLOFT [Suspect]
     Indication: STRESS
     Dosage: 50 MG (50 MG, 1 IN 1 D)
  2. LEVOXYL [Concomitant]
  3. CARDIZEM CD [Concomitant]
  4. TOPROL-XL [Concomitant]
  5. XANAX [Concomitant]

REACTIONS (4)
  - AMNESIA [None]
  - ASTHENIA [None]
  - KIDNEY INFECTION [None]
  - SEPSIS [None]
